FAERS Safety Report 7608488-X (Version None)
Quarter: 2011Q3

REPORT INFORMATION
  Report Type: 
  Country: None (occurrence: None)
  Receive Date: 20110714
  Receipt Date: 20110706
  Transmission Date: 20111222
  Serious: Yes (Other)
  Sender: FDA-Public Use
  Company Number: US-BAYER-2011-050553

PATIENT
  Age: 29 Year
  Sex: Female

DRUGS (2)
  1. MIRENA [Suspect]
     Indication: CONTRACEPTION
     Dosage: 20 MCG/24HR, ONCE
     Route: 048
     Dates: start: 20110606, end: 20110606
  2. MIRENA [Suspect]
     Dosage: UNK
     Dates: start: 20110606

REACTIONS (1)
  - DEVICE DISLOCATION [None]
